FAERS Safety Report 7565519-3 (Version None)
Quarter: 2011Q2

REPORT INFORMATION
  Report Type: 
  Country: None (occurrence: None)
  Receive Date: 20110623
  Receipt Date: 20110609
  Transmission Date: 20111010
  Serious: No
  Sender: FDA-Public Use
  Company Number: US-BIOGENIDEC-2011BI022551

PATIENT
  Sex: Female

DRUGS (3)
  1. TYSABRI [Suspect]
     Indication: MULTIPLE SCLEROSIS
     Route: 042
     Dates: start: 20110602
  2. AMPYRA [Concomitant]
     Indication: GAIT DISTURBANCE
     Dates: start: 20110518, end: 20110609
  3. ZOLPIDEM [Concomitant]
     Indication: INSOMNIA

REACTIONS (5)
  - BALANCE DISORDER [None]
  - BACK PAIN [None]
  - ASTHENIA [None]
  - DEPRESSION [None]
  - DECREASED APPETITE [None]
